FAERS Safety Report 10749041 (Version 3)
Quarter: 2015Q1

REPORT INFORMATION
  Report Type: Report from Study
  Country: RO (occurrence: RO)
  Receive Date: 20150129
  Receipt Date: 20150304
  Transmission Date: 20150721
  Serious: Yes (Other)
  Sender: FDA-Public Use
  Company Number: RO-GILEAD-2015-0133801

PATIENT
  Age: 51 Year
  Sex: Male
  Weight: 93 kg

DRUGS (10)
  1. IDELALISIB [Suspect]
     Active Substance: IDELALISIB
     Dosage: 150 MG, BID
     Route: 048
     Dates: start: 20150216, end: 20150217
  2. RITUXIMAB [Suspect]
     Active Substance: RITUXIMAB
     Indication: CHROMOSOMAL DELETION
     Dosage: UNK
     Route: 042
  3. RITUXIMAB [Suspect]
     Active Substance: RITUXIMAB
     Dosage: 787 MG, Q1WK
     Route: 042
     Dates: start: 20150202, end: 20150202
  4. RITUXIMAB [Suspect]
     Active Substance: RITUXIMAB
     Dosage: 787 MG, Q1WK
     Route: 042
     Dates: start: 20150216, end: 20150216
  5. IDELALISIB [Suspect]
     Active Substance: IDELALISIB
     Indication: CHRONIC LYMPHOCYTIC LEUKAEMIA
     Dosage: 150 MG, BID
     Route: 048
     Dates: start: 20150112, end: 20150121
  6. RITUXIMAB [Suspect]
     Active Substance: RITUXIMAB
     Dosage: 787 MG, Q1WK
     Route: 042
     Dates: start: 20150209, end: 20150209
  7. RITUXIMAB [Suspect]
     Active Substance: RITUXIMAB
     Dosage: 787 MG, Q1WK
     Route: 042
     Dates: start: 20150119, end: 20150119
  8. IDELALISIB [Suspect]
     Active Substance: IDELALISIB
     Indication: CHROMOSOMAL DELETION
     Dosage: 100 MG, BID
     Route: 048
     Dates: start: 20150126, end: 20150215
  9. RITUXIMAB [Suspect]
     Active Substance: RITUXIMAB
     Dosage: 787 MG, Q1WK
     Route: 042
     Dates: start: 20150126, end: 20150126
  10. RITUXIMAB [Suspect]
     Active Substance: RITUXIMAB
     Indication: CHRONIC LYMPHOCYTIC LEUKAEMIA
     Dosage: 787.5 MG, ONCE
     Route: 042
     Dates: start: 20150112, end: 20150112

REACTIONS (1)
  - Dyslipidaemia [Recovered/Resolved]

NARRATIVE: CASE EVENT DATE: 20150120
